FAERS Safety Report 21475573 (Version 4)
Quarter: 2022Q4

REPORT INFORMATION
  Report Type: Spontaneous
  Country: US (occurrence: US)
  Receive Date: 20221019
  Receipt Date: 20221122
  Transmission Date: 20230113
  Serious: No
  Sender: FDA-Public Use
  Company Number: US-SANOFI-01320989

PATIENT
  Age: 88 Year
  Sex: Male

DRUGS (2)
  1. LANTUS SOLOSTAR [Suspect]
     Active Substance: INSULIN GLARGINE
     Indication: Type 2 diabetes mellitus
     Dosage: 15 IU, QD /(HS)
  2. OZEMPIC [Concomitant]
     Active Substance: SEMAGLUTIDE
     Indication: Type 2 diabetes mellitus
     Dosage: UNK

REACTIONS (4)
  - Blood glucose increased [Unknown]
  - Incorrect dose administered [Unknown]
  - Device mechanical issue [Unknown]
  - Hypoacusis [Unknown]

NARRATIVE: CASE EVENT DATE: 20221001
